FAERS Safety Report 7637869-3 (Version None)
Quarter: 2011Q3

REPORT INFORMATION
  Report Type: 
  Country: None (occurrence: None)
  Receive Date: 20110727
  Receipt Date: 20110721
  Transmission Date: 20111222
  Serious: Yes (Other)
  Sender: FDA-Public Use
  Company Number: CH-JNJFOC-20110612130

PATIENT
  Age: 49 Year
  Sex: Female
  Weight: 78 kg

DRUGS (8)
  1. AMITRIPTYLINE HCL [Concomitant]
     Dosage: FREQUNCY REPORTED AS ^OID^
     Route: 048
  2. TRAMACTIL UNO [Concomitant]
     Dosage: FREQUENCY REPORTED AS ^OID^
     Route: 048
  3. LAXOBERON [Concomitant]
     Dosage: LONG TERM
  4. NISULID [Concomitant]
     Dosage: FREQUENCY REPORTED AS ^OID^
  5. OMEPRAZOLE [Concomitant]
     Dosage: FREQUENCY REPORTED AS OID
     Route: 048
  6. MODURETIC 5-50 [Concomitant]
     Dosage: LONG TERM
  7. ACETAMINOPHEN [Concomitant]
     Dosage: LONG TERM
  8. SIMPONI [Suspect]
     Indication: ANKYLOSING SPONDYLITIS
     Route: 058
     Dates: start: 20110301, end: 20110606

REACTIONS (3)
  - HYPERTHYROIDISM [None]
  - SYNCOPE [None]
  - PYREXIA [None]
